FAERS Safety Report 8560683-1 (Version None)
Quarter: 2012Q3

REPORT INFORMATION
  Report Type: 
  Country: None (occurrence: None)
  Receive Date: 20120802
  Receipt Date: 20120731
  Transmission Date: 20120928
  Serious: Yes (Other)
  Sender: FDA-Public Use
  Company Number: US-PFIZER INC-2012156298

PATIENT
  Sex: Female
  Weight: 52.6 kg

DRUGS (5)
  1. PRAVASTATIN [Concomitant]
     Indication: BLOOD CHOLESTEROL INCREASED
     Dosage: 20 MG, DAILY
  2. ACETYLSALICYLIC ACID [Concomitant]
     Indication: ANTICOAGULANT THERAPY
     Dosage: 81 MG, DAILY
  3. LISINOPRIL [Concomitant]
     Dosage: 10 MG, DAILY
  4. CHANTIX [Suspect]
     Indication: SMOKING CESSATION THERAPY
     Dosage: UNK
     Route: 048
  5. CHANTIX [Suspect]
     Dosage: UNK
     Dates: start: 20120601

REACTIONS (3)
  - DEPRESSION [None]
  - ABNORMAL DREAMS [None]
  - HALLUCINATION, AUDITORY [None]
